FAERS Safety Report 18342341 (Version 1)
Quarter: 2020Q4

REPORT INFORMATION
  Report Type: Spontaneous
  Country: US (occurrence: US)
  Receive Date: 20201005
  Receipt Date: 20201005
  Transmission Date: 20210113
  Serious: No
  Sender: FDA-Public Use
  Company Number: US-APOTEX-2020AP017708

PATIENT
  Sex: Female

DRUGS (1)
  1. FLUTICASONE PROPIONATE NASAL SPRAY [Suspect]
     Active Substance: FLUTICASONE PROPIONATE
     Indication: RHINORRHOEA
     Dosage: TWO SPRAYS IN EACH NOSTRIL ONCE DAILY AT NIGHT VIA INTRA-NASAL ROUTE, QD
     Route: 045
     Dates: start: 202001

REACTIONS (2)
  - Pruritus [Not Recovered/Not Resolved]
  - Drug intolerance [Unknown]
